FAERS Safety Report 11750224 (Version 2)
Quarter: 2015Q4

REPORT INFORMATION
  Report Type: Spontaneous
  Country: KR (occurrence: KR)
  Receive Date: 20151118
  Receipt Date: 20151202
  Transmission Date: 20160304
  Serious: Yes (Other)
  Sender: FDA-Public Use
  Company Number: KR-PFIZER INC-2015391735

PATIENT
  Age: 50 Year
  Sex: Female

DRUGS (4)
  1. CALCORT [Suspect]
     Active Substance: DEFLAZACORT
     Indication: SYSTEMIC LUPUS ERYTHEMATOSUS
     Dosage: UNK
     Route: 048
     Dates: start: 2010
  2. CELLCEPT [Concomitant]
     Active Substance: MYCOPHENOLATE MOFETIL\MYCOPHENOLATE MOFETIL HYDROCHLORIDE
     Dosage: UNK
     Dates: start: 2010
  3. CALCORT [Suspect]
     Active Substance: DEFLAZACORT
     Dosage: UNK
     Route: 048
  4. TRITACE [Suspect]
     Active Substance: RAMIPRIL
     Indication: SYSTEMIC LUPUS ERYTHEMATOSUS
     Dosage: 2.5 MG, UNK
     Route: 048
     Dates: start: 2010

REACTIONS (5)
  - Osteonecrosis [Unknown]
  - Cough [Unknown]
  - Nausea [Unknown]
  - Raynaud^s phenomenon [Unknown]
  - Glaucoma [Unknown]

NARRATIVE: CASE EVENT DATE: 201510
